FAERS Safety Report 5345112-3 (Version None)
Quarter: 2007Q2

REPORT INFORMATION
  Report Type: 
  Country: None (occurrence: None)
  Receive Date: 20070601
  Receipt Date: 20070529
  Transmission Date: 20071010
  Serious: Yes (Death)
  Sender: FDA-Public Use
  Company Number: 163-20785-07041239

PATIENT
  Sex: Female

DRUGS (1)
  1. THALOMID [Suspect]
     Indication: OVARIAN CANCER
     Dosage: 600 MG, 6 IN 1 D, ORAL
     Route: 048
     Dates: start: 20060720

REACTIONS (2)
  - DESMOPLASTIC SMALL ROUND CELL TUMOUR [None]
  - MALIGNANT NEOPLASM PROGRESSION [None]
